FAERS Safety Report 19048294 (Version 1)
Quarter: 2021Q1

REPORT INFORMATION
  Report Type: Spontaneous
  Country: US (occurrence: US)
  Receive Date: 20210324
  Receipt Date: 20210324
  Transmission Date: 20210420
  Serious: No
  Sender: FDA-Public Use
  Company Number: US-UNITED THERAPEUTICS-UNT-2021-005052

PATIENT
  Age: 72 Year
  Sex: Female
  Weight: 89.8 kg

DRUGS (4)
  1. TYVASO [Suspect]
     Active Substance: TREPROSTINIL
     Indication: PULMONARY ARTERIAL HYPERTENSION
     Dosage: UNK
     Dates: start: 20200507
  2. OPSUMIT [Concomitant]
     Active Substance: MACITENTAN
     Indication: PRODUCT USED FOR UNKNOWN INDICATION
     Dosage: UNK
     Route: 065
  3. TYVASO [Suspect]
     Active Substance: TREPROSTINIL
     Dosage: 18?54 ?G, QID
  4. TADALAFIL. [Concomitant]
     Active Substance: TADALAFIL
     Indication: PRODUCT USED FOR UNKNOWN INDICATION
     Dosage: UNK
     Route: 065

REACTIONS (9)
  - Fall [Recovered/Resolved with Sequelae]
  - Myalgia [Unknown]
  - Blood pressure abnormal [Recovering/Resolving]
  - Malaise [Unknown]
  - Diarrhoea [Unknown]
  - Presyncope [Recovering/Resolving]
  - Arthralgia [Unknown]
  - Nausea [Unknown]
  - Pulse abnormal [Recovering/Resolving]

NARRATIVE: CASE EVENT DATE: 20210131
